FAERS Safety Report 14783289 (Version 1)
Quarter: 2018Q2

REPORT INFORMATION
  Report Type: Report from Study
  Country: US (occurrence: US)
  Receive Date: 20180420
  Receipt Date: 20180420
  Transmission Date: 20180711
  Serious: No
  Sender: FDA-Public Use
  Company Number: US-ROCHE-2111258

PATIENT
  Age: 29 Year
  Sex: Male
  Weight: 65.83 kg

DRUGS (1)
  1. OCREVUS [Suspect]
     Active Substance: OCRELIZUMAB
     Indication: RELAPSING-REMITTING MULTIPLE SCLEROSIS
     Dosage: HAD BOTH HALVES OF OCREVUS ;ONGOING: NO?TO HAVE FIRST FULL OCREVUS DOSE 19/APR/2018;ONGOING: YES
     Route: 042
     Dates: start: 20171006, end: 201710

REACTIONS (2)
  - Nasopharyngitis [Not Recovered/Not Resolved]
  - Dysphonia [Not Recovered/Not Resolved]

NARRATIVE: CASE EVENT DATE: 201804
